FAERS Safety Report 21468890 (Version 1)
Quarter: 2022Q4

REPORT INFORMATION
  Report Type: Spontaneous
  Country: US (occurrence: US)
  Receive Date: 20221018
  Receipt Date: 20221018
  Transmission Date: 20230113
  Serious: No
  Sender: FDA-Public Use
  Company Number: US-ALLERGAN-2141099US

PATIENT
  Sex: Male
  Weight: 81.633 kg

DRUGS (5)
  1. LINZESS [Suspect]
     Active Substance: LINACLOTIDE
     Indication: Constipation
     Dosage: 290 ?G, QAM
     Dates: start: 20211118
  2. ROPINIROLE [Concomitant]
     Active Substance: ROPINIROLE
     Indication: Parkinson^s disease
     Dosage: 1MG 4.5 TIMES A DAY
  3. VITAMINS NOS [Concomitant]
     Active Substance: VITAMINS
  4. Unspecified eye injection [Concomitant]
     Indication: Neovascular age-related macular degeneration
     Dosage: EVERY 4-5 WEEKS
  5. Unspecified constipation medication [Concomitant]
     Indication: Constipation

REACTIONS (1)
  - Therapeutic response decreased [Unknown]
